FAERS Safety Report 6137288-5 (Version None)
Quarter: 2009Q1

REPORT INFORMATION
  Report Type: 
  Country: None (occurrence: None)
  Receive Date: 20090326
  Receipt Date: 20090326
  Transmission Date: 20090719
  Serious: Yes (Other)
  Sender: FDA-Public Use
  Company Number: None

PATIENT
  Age: 25 Year
  Sex: Male
  Weight: 105.2345 kg

DRUGS (2)
  1. DILANTIN [Suspect]
     Indication: CONVULSION
     Dosage: 350 MG HS
     Dates: start: 20070101, end: 20090101
  2. LAMICTAL [Suspect]
     Indication: CONVULSION
     Dosage: 225 MG QD
     Dates: start: 20070101, end: 20090101

REACTIONS (6)
  - ANTICONVULSANT DRUG LEVEL BELOW THERAPEUTIC [None]
  - CONVULSION [None]
  - DIARRHOEA [None]
  - DRUG LEVEL CHANGED [None]
  - NAUSEA [None]
  - PRODUCT QUALITY ISSUE [None]
